FAERS Safety Report 5243153-8 (Version None)
Quarter: 2007Q1

REPORT INFORMATION
  Report Type: 
  Country: None (occurrence: None)
  Receive Date: 20070221
  Receipt Date: 20070215
  Transmission Date: 20070707
  Serious: Yes (Life-Threatening)
  Sender: FDA-Public Use
  Company Number: US-PFIZER INC-2007012560

PATIENT
  Age: 65 Year
  Sex: Female
  Weight: 106 kg

DRUGS (3)
  1. EXEMESTANE [Suspect]
     Indication: BREAST CANCER
     Dosage: DAILY DOSE:25MG-FREQ:DAILY
     Route: 048
     Dates: start: 20050519, end: 20051102
  2. TAMOXIFEN CITRATE [Suspect]
  3. FEMARA [Suspect]

REACTIONS (1)
  - PULMONARY EMBOLISM [None]
